FAERS Safety Report 23986823 (Version 2)
Quarter: 2024Q3

REPORT INFORMATION
  Report Type: Spontaneous
  Country: US (occurrence: US)
  Receive Date: 20240618
  Receipt Date: 20240723
  Transmission Date: 20241017
  Serious: Yes (Other)
  Sender: PFIZER
  Company Number: US-PFIZER INC-202400193339

PATIENT
  Age: 59 Year
  Sex: Female

DRUGS (4)
  1. TUKYSA [Suspect]
     Active Substance: TUCATINIB
     Dosage: 150 MG
     Route: 048
     Dates: start: 20240523
  2. TUKYSA [Suspect]
     Active Substance: TUCATINIB
     Dosage: 300 MG, 2X/DAY
     Route: 048
     Dates: start: 20240523
  3. TUKYSA [Suspect]
     Active Substance: TUCATINIB
     Dosage: TAKE 1 PILL A DAY
  4. CAPECITABINE [Concomitant]
     Active Substance: CAPECITABINE
     Dosage: UNK

REACTIONS (10)
  - Diarrhoea [Unknown]
  - Dehydration [Unknown]
  - Faeces soft [Unknown]
  - Dry skin [Unknown]
  - Eye pruritus [Unknown]
  - Lacrimation increased [Unknown]
  - Fatigue [Unknown]
  - Sluggishness [Unknown]
  - Blood creatinine increased [Unknown]
  - Product dose omission in error [Unknown]
